FAERS Safety Report 19757665 (Version 3)
Quarter: 2021Q4

REPORT INFORMATION
  Report Type: Report from Study
  Country: US (occurrence: US)
  Receive Date: 20210828
  Receipt Date: 20211103
  Transmission Date: 20220303
  Serious: Yes (Hospitalization, Other)
  Sender: FDA-Public Use
  Company Number: US-NOVARTISTESTPH-NVSC2021US194812

PATIENT
  Age: 89 Year
  Sex: Male

DRUGS (3)
  1. ENTRESTO [Suspect]
     Active Substance: SACUBITRIL\VALSARTAN
     Indication: Cardiac failure
     Dosage: 1 DF (24/26 MG) BID
     Route: 048
     Dates: start: 20210401
  2. LASIX [Concomitant]
     Active Substance: FUROSEMIDE
     Indication: Product used for unknown indication
     Dosage: UNK
     Route: 065
  3. LASIX [Concomitant]
     Active Substance: FUROSEMIDE
     Dosage: 0.5 DF (WAS ADJUSTED UP AND THEN CUT IN HALF)
     Route: 065

REACTIONS (10)
  - Weight decreased [Unknown]
  - Pneumonia [Unknown]
  - Peripheral swelling [Unknown]
  - Skin discharge [Unknown]
  - Salt craving [Unknown]
  - Decreased activity [Unknown]
  - Dyspnoea [Recovering/Resolving]
  - Product availability issue [Unknown]
  - Product dose omission issue [Unknown]
  - Wrong technique in product usage process [Unknown]

NARRATIVE: CASE EVENT DATE: 20210801
